FAERS Safety Report 18411096 (Version 1)
Quarter: 2020Q4

REPORT INFORMATION
  Report Type: Spontaneous
  Country: US (occurrence: US)
  Receive Date: 20201021
  Receipt Date: 20201021
  Transmission Date: 20210114
  Serious: Yes (Life-Threatening, Other)
  Sender: FDA-Public Use
  Company Number: US-PFIZER INC-2020406206

PATIENT
  Age: 44 Year
  Sex: Female

DRUGS (6)
  1. MIDAZOLAM. [Suspect]
     Active Substance: MIDAZOLAM
     Indication: OVARIAN ENDOMETRIOID CARCINOMA
  2. PROPOFOL. [Suspect]
     Active Substance: PROPOFOL
     Indication: UTERINE LEIOMYOMA
     Dosage: UNK
  3. MIDAZOLAM. [Suspect]
     Active Substance: MIDAZOLAM
     Indication: UTERINE LEIOMYOMA
  4. ROCURONIUM BROMIDE. [Suspect]
     Active Substance: ROCURONIUM BROMIDE
     Indication: UTERINE LEIOMYOMA
  5. PROPOFOL. [Suspect]
     Active Substance: PROPOFOL
     Indication: OVARIAN ENDOMETRIOID CARCINOMA
  6. ROCURONIUM BROMIDE. [Suspect]
     Active Substance: ROCURONIUM BROMIDE
     Indication: OVARIAN ENDOMETRIOID CARCINOMA

REACTIONS (6)
  - Hypotension [Unknown]
  - Pulmonary embolism [Unknown]
  - Cardiac arrest [Recovered/Resolved]
  - Stress cardiomyopathy [Unknown]
  - Hypoxia [Unknown]
  - Coronary artery embolism [Unknown]
